FAERS Safety Report 10230046 (Version 1)
Quarter: 2014Q2

REPORT INFORMATION
  Report Type: Spontaneous
  Country: US (occurrence: US)
  Receive Date: 20140611
  Receipt Date: 20140611
  Transmission Date: 20141212
  Serious: No
  Sender: FDA-Public Use
  Company Number: US-ABBVIE-14P-163-1186718-00

PATIENT
  Age: 75 Year
  Sex: Female
  Weight: 86.26 kg

DRUGS (3)
  1. K-TAB CR [Suspect]
     Indication: ELECTROLYTE SUBSTITUTION THERAPY
     Dates: start: 20131205, end: 20131205
  2. SENNA [Suspect]
     Indication: CONSTIPATION
     Dates: start: 20131204, end: 20131204
  3. FUROSEMIDE [Concomitant]
     Indication: LOCAL SWELLING

REACTIONS (4)
  - Medication residue present [Recovered/Resolved]
  - Dyspepsia [Unknown]
  - Product quality issue [Unknown]
  - Diarrhoea [Unknown]
